FAERS Safety Report 17880690 (Version 1)
Quarter: 2020Q2

REPORT INFORMATION
  Report Type: Spontaneous
  Country: TT (occurrence: TT)
  Receive Date: 20200610
  Receipt Date: 20200610
  Transmission Date: 20200714
  Serious: Yes (Death)
  Sender: FDA-Public Use
  Company Number: TT-PFIZER INC-2020223179

PATIENT
  Sex: Female

DRUGS (1)
  1. CYTOTEC [Suspect]
     Active Substance: MISOPROSTOL
     Indication: INDUCED LABOUR
     Dosage: 50 MG
     Route: 067
     Dates: start: 20100202

REACTIONS (6)
  - Product use in unapproved indication [Fatal]
  - Retained placenta or membranes [Fatal]
  - Multiple organ dysfunction syndrome [Fatal]
  - Toxic shock syndrome [Fatal]
  - Off label use [Fatal]
  - Postpartum sepsis [Fatal]

NARRATIVE: CASE EVENT DATE: 20100202
